FAERS Safety Report 7797988-8 (Version None)
Quarter: 2011Q4

REPORT INFORMATION
  Report Type: 
  Country: None (occurrence: None)
  Receive Date: 20111005
  Receipt Date: 20110909
  Transmission Date: 20120403
  Serious: Yes (Other)
  Sender: FDA-Public Use
  Company Number: JP-GLAXOSMITHKLINE-B0746901A

PATIENT
  Sex: Female

DRUGS (8)
  1. ROHYPNOL [Concomitant]
  2. DEPAS [Concomitant]
     Route: 048
  3. LENDORMIN [Concomitant]
     Dosage: 1IUAX PER DAY
     Route: 048
     Dates: start: 20110615
  4. LORAZEPAM [Concomitant]
  5. DOGMATYL [Concomitant]
  6. PAXIL [Suspect]
     Indication: PRODUCT USED FOR UNKNOWN INDICATION
     Dosage: 10MG PER DAY
     Route: 048
     Dates: start: 20110615, end: 20110903
  7. ROZEREM [Concomitant]
     Dosage: 1IUAX PER DAY
     Route: 048
     Dates: start: 20110615
  8. CHINESE MEDICINE [Concomitant]
     Dosage: 3IUAX PER DAY
     Route: 048
     Dates: start: 20110629

REACTIONS (3)
  - ANXIETY [None]
  - MANIA [None]
  - BIPOLAR DISORDER [None]
